FAERS Safety Report 19419804 (Version 1)
Quarter: 2021Q2

REPORT INFORMATION
  Report Type: Report from Study
  Country: None (occurrence: GB)
  Receive Date: 20210616
  Receipt Date: 20210616
  Transmission Date: 20210717
  Serious: Yes (Other)
  Sender: FDA-Public Use
  Company Number: GB-ABBVIE-21K-167-3949854-00

PATIENT
  Sex: Female

DRUGS (1)
  1. HUMIRA [Suspect]
     Active Substance: ADALIMUMAB
     Indication: RHEUMATOID ARTHRITIS
     Route: 058

REACTIONS (2)
  - Speech disorder [Unknown]
  - Motor neurone disease [Unknown]
